FAERS Safety Report 25674498 (Version 1)
Quarter: 2025Q3

REPORT INFORMATION
  Report Type: Spontaneous
  Country: US (occurrence: US)
  Receive Date: 20250813
  Receipt Date: 20250813
  Transmission Date: 20251021
  Serious: Yes (Death, Life-Threatening, Hospitalization)
  Sender: STRIDES
  Company Number: None

PATIENT
  Age: 64 Year
  Sex: Male

DRUGS (4)
  1. PREDNISOLONE [Suspect]
     Active Substance: PREDNISOLONE
     Indication: Henoch-Schonlein purpura nephritis
     Route: 048
  2. PREDNISOLONE [Suspect]
     Active Substance: PREDNISOLONE
     Route: 048
  3. METHYLPREDNISOLONE [Suspect]
     Active Substance: METHYLPREDNISOLONE
     Indication: Henoch-Schonlein purpura nephritis
     Route: 042
  4. NAFCILLIN [Concomitant]
     Active Substance: NAFCILLIN SODIUM
     Indication: Staphylococcal bacteraemia
     Route: 065

REACTIONS (12)
  - Post infection glomerulonephritis [Fatal]
  - Duodenal ulcer perforation [Fatal]
  - Septic shock [Fatal]
  - Enterococcal bacteraemia [Fatal]
  - Systemic candida [Fatal]
  - Pathogen resistance [Fatal]
  - Klebsiella infection [Fatal]
  - Septic vasculitis [Fatal]
  - Multiple organ dysfunction syndrome [Fatal]
  - Retroperitoneal haematoma [Fatal]
  - Renal pseudoaneurysm [Fatal]
  - Condition aggravated [Fatal]
